FAERS Safety Report 8487880-8 (Version None)
Quarter: 2012Q2

REPORT INFORMATION
  Report Type: 
  Country: None (occurrence: None)
  Receive Date: 20120627
  Receipt Date: 20120619
  Transmission Date: 20120825
  Serious: Yes (Disabling, Other)
  Sender: FDA-Public Use
  Company Number: AUR-APL-2012-02515

PATIENT
  Age: 50 Year
  Sex: Male

DRUGS (7)
  1. DOCUSATE (DOCUSATE) [Suspect]
     Indication: DIARRHOEA
  2. PROTONIX [Suspect]
     Indication: PRODUCT USED FOR UNKNOWN INDICATION
     Dosage: 40 MG (40 MG, 1 IN 1 D), ORAL
     Route: 048
  3. CALCIUM WITH VITAMIN D (LEKOVIT CA) [Suspect]
     Indication: PRODUCT USED FOR UNKNOWN INDICATION
  4. BISOPROLOL FUMARATE [Suspect]
     Indication: PRODUCT USED FOR UNKNOWN INDICATION
  5. PLAVIX [Suspect]
     Indication: PRODUCT USED FOR UNKNOWN INDICATION
  6. MAGNESIUM HYDROXIDE TAB [Suspect]
     Indication: PRODUCT USED FOR UNKNOWN INDICATION
  7. ASPIRIN [Suspect]
     Indication: PRODUCT USED FOR UNKNOWN INDICATION

REACTIONS (6)
  - BRAIN STEM STROKE [None]
  - IMPAIRED WORK ABILITY [None]
  - FALL [None]
  - CERVICAL VERTEBRAL FRACTURE [None]
  - CEREBROVASCULAR ACCIDENT [None]
  - VERTEBRAL ARTERY OCCLUSION [None]
